FAERS Safety Report 7734694-X (Version None)
Quarter: 2011Q3

REPORT INFORMATION
  Report Type: 
  Country: None (occurrence: None)
  Receive Date: 20110907
  Receipt Date: 20110826
  Transmission Date: 20111222
  Serious: Yes (Hospitalization, Other)
  Sender: FDA-Public Use
  Company Number: CA-ELI_LILLY_AND_COMPANY-CA201108008104

PATIENT
  Sex: Male

DRUGS (17)
  1. HALDOL [Concomitant]
  2. LITHIUM CARBONATE [Concomitant]
  3. ZYPREXA [Suspect]
     Dosage: 7.5 MG, UNK
  4. ZYPREXA [Suspect]
     Dosage: 10 MG, UNK
  5. LIPIDIL [Concomitant]
  6. ZYPREXA [Suspect]
     Dosage: 5 MG, UNK
  7. ZOLOFT [Concomitant]
  8. CLONAZEPAM [Concomitant]
  9. FLUVOXAMINE MALEATE [Concomitant]
  10. VALPROATE SODIUM [Concomitant]
  11. ZYPREXA [Suspect]
     Indication: BIPOLAR DISORDER
     Dosage: 2.5 MG, UNK
  12. DALMANE [Concomitant]
  13. ATARAX [Concomitant]
  14. ATIVAN [Concomitant]
  15. RISPERDAL [Concomitant]
  16. CHLORPROMAZINE [Concomitant]
  17. WELLBUTRIN [Concomitant]

REACTIONS (9)
  - RENAL FAILURE CHRONIC [None]
  - HEPATIC STEATOSIS [None]
  - BRONCHITIS [None]
  - CELLULITIS [None]
  - HYPERTENSION [None]
  - DIABETES MELLITUS [None]
  - GLOSSODYNIA [None]
  - CATARACT OPERATION [None]
  - BRONCHITIS CHEMICAL [None]
